FAERS Safety Report 20139546 (Version 1)
Quarter: 2021Q4

REPORT INFORMATION
  Report Type: Spontaneous
  Country: CH (occurrence: CH)
  Receive Date: 20211202
  Receipt Date: 20211202
  Transmission Date: 20220303
  Serious: Yes (Life-Threatening, Hospitalization, Other)
  Sender: FDA-Public Use
  Company Number: CH-PFIZER INC-202101635052

PATIENT
  Age: 14 Year
  Sex: Male
  Weight: 55 kg

DRUGS (4)
  1. VINCRISTINE SULFATE [Suspect]
     Active Substance: VINCRISTINE SULFATE
     Indication: Ewing^s sarcoma
     Dosage: 21 MG/M2 (CUMULATIVE DOSE)
     Route: 041
     Dates: start: 20200606, end: 20200902
  2. DOXORUBICIN HYDROCHLORIDE [Suspect]
     Active Substance: DOXORUBICIN HYDROCHLORIDE
     Indication: Ewing^s sarcoma
     Dosage: 360 MG/M2 (CUMULATIVE DOSE)
     Route: 041
     Dates: start: 20200606, end: 20200902
  3. ETOPOSIDE [Suspect]
     Active Substance: ETOPOSIDE
     Indication: Ewing^s sarcoma
     Dosage: 2700 MG/M2 (CUMULATIVE DOSE)
     Route: 041
     Dates: start: 20200606, end: 20200902
  4. IFOSFAMIDE [Suspect]
     Active Substance: IFOSFAMIDE
     Indication: Ewing^s sarcoma
     Dosage: 102 MG/M2 (CUMULATIVE DOSE)
     Route: 041
     Dates: start: 20200606, end: 20200902

REACTIONS (2)
  - Second primary malignancy [Not Recovered/Not Resolved]
  - Acute myeloid leukaemia [Not Recovered/Not Resolved]

NARRATIVE: CASE EVENT DATE: 20210929
